FAERS Safety Report 21844562 (Version 1)
Quarter: 2023Q1

REPORT INFORMATION
  Report Type: Spontaneous
  Country: US (occurrence: US)
  Receive Date: 20230110
  Receipt Date: 20230110
  Transmission Date: 20230417
  Serious: No
  Sender: FDA-Public Use
  Company Number: US-BAYER-2023P001944

PATIENT
  Age: 14 Year
  Sex: Male

DRUGS (2)
  1. JIVI [Suspect]
     Active Substance: DAMOCTOCOG ALFA PEGOL
     Dosage: 2346 IU
  2. JIVI [Suspect]
     Active Substance: DAMOCTOCOG ALFA PEGOL
     Dosage: 1 DF, ONCE - 1 DOSE ADMINISTERED TO TREAT THE EVENT
     Dates: start: 20230108, end: 20230108

REACTIONS (1)
  - Abdominal injury [None]

NARRATIVE: CASE EVENT DATE: 20230108
